FAERS Safety Report 9995452 (Version 1)
Quarter: 2014Q1

REPORT INFORMATION
  Report Type: Spontaneous
  Country: US (occurrence: None)
  Receive Date: 20140306
  Receipt Date: 20140306
  Transmission Date: 20141002
  Serious: Yes (Other)
  Sender: FDA-Public Use
  Company Number: 2014-US-002212

PATIENT
  Age: 47 Year
  Sex: Female

DRUGS (2)
  1. XYREM (SODIUM OXYBATE) ORAL SOLUTION, 500MG/ML [Suspect]
     Indication: NARCOLEPSY
     Route: 048
     Dates: start: 201007
  2. PAIN MEDICATION [Suspect]
     Indication: PAIN

REACTIONS (11)
  - Insomnia [None]
  - Cataplexy [None]
  - Malaise [None]
  - Head injury [None]
  - Tooth fracture [None]
  - Contusion [None]
  - Restlessness [None]
  - Drug ineffective [None]
  - Drug withdrawal syndrome [None]
  - Muscle spasms [None]
  - Drug dose omission [None]
